FAERS Safety Report 9802561 (Version 1)
Quarter: 2014Q1

REPORT INFORMATION
  Report Type: Spontaneous
  Country: US (occurrence: US)
  Receive Date: 20140108
  Receipt Date: 20140108
  Transmission Date: 20141002
  Serious: No
  Sender: FDA-Public Use
  Company Number: US-BAYER-2014-001799

PATIENT
  Age: 82 Year
  Sex: Female

DRUGS (1)
  1. ALEVE TABLET [Suspect]
     Indication: EAR PAIN
     Dosage: 1 DF, ONCE
     Route: 048
     Dates: start: 20131215, end: 20131215

REACTIONS (2)
  - Heart rate increased [Recovered/Resolved]
  - Insomnia [Recovered/Resolved]
